FAERS Safety Report 13257798 (Version 1)
Quarter: 2017Q1

REPORT INFORMATION
  Report Type: Spontaneous
  Country: IT (occurrence: IT)
  Receive Date: 20170221
  Receipt Date: 20170221
  Transmission Date: 20170428
  Serious: Yes (Life-Threatening, Hospitalization)
  Sender: FDA-Public Use
  Company Number: PHHY2017IT019539

PATIENT
  Age: 3 Year
  Sex: Female
  Weight: 18 kg

DRUGS (1)
  1. ELTROMBOPAG [Suspect]
     Active Substance: ELTROMBOPAG
     Indication: IMMUNE THROMBOCYTOPENIC PURPURA
     Dosage: 50 MG, QD
     Route: 048
     Dates: start: 20160713, end: 20170205

REACTIONS (21)
  - Lymphocyte percentage decreased [Unknown]
  - Splenomegaly [Unknown]
  - Nausea [Unknown]
  - Hepatic failure [Recovering/Resolving]
  - Coagulopathy [Recovering/Resolving]
  - Thrombin time prolonged [Unknown]
  - Prothrombin time prolonged [Unknown]
  - Hyperammonaemia [Recovering/Resolving]
  - Blood calcium decreased [Unknown]
  - Blood glucose increased [Unknown]
  - Fibrin D dimer increased [Recovering/Resolving]
  - Activated partial thromboplastin time prolonged [Unknown]
  - Vomiting [Recovering/Resolving]
  - Blood creatine phosphokinase increased [Unknown]
  - White blood cell count increased [Unknown]
  - Neutrophil percentage increased [Recovering/Resolving]
  - Prothrombin time shortened [Unknown]
  - Altered state of consciousness [Recovering/Resolving]
  - Hepatic encephalopathy [Unknown]
  - Blood albumin decreased [Unknown]
  - Blood urea increased [Recovered/Resolved]

NARRATIVE: CASE EVENT DATE: 20170205
